FAERS Safety Report 8362823 (Version 2)
Quarter: 2013Q1

REPORT INFORMATION
  Report Type: Spontaneous
  Country: US (occurrence: US)
  Receive Date: 20120130
  Receipt Date: 20130129
  Transmission Date: 20140127
  Serious: No
  Sender: FDA-Public Use
  Company Number: US-ABBOTT-11P-163-0846942-00

PATIENT
  Sex: Male
  Weight: 99.88 kg

DRUGS (7)
  1. LUPRON DEPOT 7.5 MG [Suspect]
     Indication: PROSTATE CANCER
     Route: 030
     Dates: start: 199008, end: 201108
  2. LISINOPRIL [Concomitant]
     Indication: HYPERTENSION
     Route: 048
  3. FOSAMAX [Concomitant]
     Indication: OSTEOPENIA
  4. UNKNOWN ENERGY GREEN SUPPLEMENT [Concomitant]
     Indication: SUPPLEMENTATION THERAPY
     Dosage: BARLEY GREEN BASED SUPPLEMENT
  5. ALENDRONATE [Concomitant]
     Indication: OSTEOPOROSIS
  6. FLEUDOMIDE [Concomitant]
     Indication: PRODUCT USED FOR UNKNOWN INDICATION
  7. MULTI VITAMIN [Concomitant]
     Indication: VITAMIN SUPPLEMENTATION

REACTIONS (11)
  - Red blood cell count decreased [Recovered/Resolved]
  - White blood cell count decreased [Recovered/Resolved]
  - Platelet count decreased [Not Recovered/Not Resolved]
  - White blood cell count decreased [Not Recovered/Not Resolved]
  - Red blood cell count decreased [Not Recovered/Not Resolved]
  - Weight increased [Not Recovered/Not Resolved]
  - White blood cell count decreased [Not Recovered/Not Resolved]
  - Red blood cell count decreased [Not Recovered/Not Resolved]
  - Platelet count decreased [Not Recovered/Not Resolved]
  - Haemoglobin decreased [Not Recovered/Not Resolved]
  - Haematocrit decreased [Not Recovered/Not Resolved]
